FAERS Safety Report 6732119-4 (Version None)
Quarter: 2010Q2

REPORT INFORMATION
  Report Type: 
  Country: None (occurrence: None)
  Receive Date: 20100519
  Receipt Date: 20100514
  Transmission Date: 20101027
  Serious: Yes (Life-Threatening, Hospitalization)
  Sender: FDA-Public Use
  Company Number: PHHY2010US31633

PATIENT
  Sex: Female

DRUGS (11)
  1. RECLAST [Suspect]
     Dosage: UNK
     Route: 042
     Dates: start: 20090922
  2. TRAMADOL HCL [Concomitant]
  3. COUMADIN [Concomitant]
  4. LIPITOR [Concomitant]
  5. BENAZEPRIL HYDROCHLORIDE [Concomitant]
  6. LANOXIN [Concomitant]
  7. HYDROCHLORIDE [Concomitant]
  8. CALCIUM WITH VITAMIN D [Concomitant]
  9. NEXIUM [Concomitant]
  10. METOPROLOL TARTRATE [Concomitant]
  11. LORAZEPAM [Concomitant]

REACTIONS (6)
  - ABASIA [None]
  - ARTERIAL THROMBOSIS LIMB [None]
  - FASCIECTOMY [None]
  - FEELING ABNORMAL [None]
  - OEDEMA PERIPHERAL [None]
  - PAIN IN EXTREMITY [None]
